FAERS Safety Report 7629348-4 (Version None)
Quarter: 2011Q3

REPORT INFORMATION
  Report Type: 
  Country: None (occurrence: None)
  Receive Date: 20110722
  Receipt Date: 20110715
  Transmission Date: 20111222
  Serious: Yes (Other)
  Sender: FDA-Public Use
  Company Number: CN-PFIZER INC-CN-WYE-G05128409

PATIENT
  Age: 29 Year
  Sex: Male
  Weight: 65 kg

DRUGS (3)
  1. ANTIHEMOPHILIC FACTOR (HUMAN) [Suspect]
     Indication: FACTOR VIII DEFICIENCY
     Dosage: 3000IU GIVEN FOR INITIAL RECOVERY
     Route: 040
     Dates: start: 20090424, end: 20090424
  2. ANTIHEMOPHILIC FACTOR (HUMAN) [Suspect]
     Dosage: 34500IU GIVEN ON DEMAND,CUMULATIVE
     Route: 040
     Dates: start: 20090429, end: 20091023
  3. ANTIHEMOPHILIC FACTOR (HUMAN) [Suspect]
     Dosage: 3000IU GIVEN FOR FINAL RECOVERY
     Route: 040
     Dates: start: 20091030, end: 20091030

REACTIONS (1)
  - FACTOR VIII INHIBITION [None]
